FAERS Safety Report 18408126 (Version 1)
Quarter: 2020Q4

REPORT INFORMATION
  Report Type: Report from Study
  Country: US (occurrence: US)
  Receive Date: 20201020
  Receipt Date: 20201020
  Transmission Date: 20210114
  Serious: Yes (Hospitalization, Other)
  Sender: FDA-Public Use
  Company Number: US-MALLINCKRODT-T202005096

PATIENT
  Sex: Female
  Weight: 134 kg

DRUGS (1)
  1. REPOSITORY CORTICOTROPIN INJECTION [Suspect]
     Active Substance: CORTICOTROPIN
     Indication: SARCOIDOSIS
     Dosage: UNK
     Route: 065

REACTIONS (7)
  - Sarcoidosis [Unknown]
  - Condition aggravated [Unknown]
  - Asthma [Unknown]
  - Hypertension [Unknown]
  - Injection site bruising [Recovered/Resolved]
  - Diabetes mellitus [Recovering/Resolving]
  - Weight decreased [Not Recovered/Not Resolved]

NARRATIVE: CASE EVENT DATE: 2020
